FAERS Safety Report 5299213-9 (Version None)
Quarter: 2007Q2

REPORT INFORMATION
  Report Type: 
  Country: None (occurrence: None)
  Receive Date: 20070411
  Receipt Date: 20070411
  Transmission Date: 20071010
  Serious: No
  Sender: FDA-Public Use
  Company Number: None

PATIENT
  Sex: Male

DRUGS (6)
  1. ETODOLAC [Suspect]
     Indication: SKELETAL INJURY
     Dosage: 400 MG  BID  PO
     Route: 048
  2. FINASTERIDE [Concomitant]
  3. FLEXERIL [Concomitant]
  4. LISINOPRIL [Concomitant]
  5. LASIX [Concomitant]
  6. METOPROLOL SUCCINATE [Concomitant]

REACTIONS (3)
  - HAEMATEMESIS [None]
  - ILL-DEFINED DISORDER [None]
  - OESOPHAGITIS [None]
